FAERS Safety Report 14300684 (Version 1)
Quarter: 2017Q4

REPORT INFORMATION
  Report Type: Spontaneous
  Country: FI (occurrence: FI)
  Receive Date: 20171219
  Receipt Date: 20171219
  Transmission Date: 20180321
  Serious: Yes (Hospitalization, Other)
  Sender: FDA-Public Use
  Company Number: PHHY2017FI188291

PATIENT
  Age: 61 Year
  Sex: Male
  Weight: 92 kg

DRUGS (11)
  1. COTRIM FORTE [Concomitant]
     Active Substance: SULFAMETHOXAZOLE\TRIMETHOPRIM
     Dosage: UNK
     Route: 048
     Dates: start: 20170607, end: 20170831
  2. ALLONOL [Concomitant]
     Active Substance: ALLOPURINOL
     Indication: HYPERURICAEMIA
     Dosage: 300 MG, QD
     Route: 048
     Dates: start: 20170607, end: 20170621
  3. ORLOC [Concomitant]
     Active Substance: BISOPROLOL FUMARATE
     Indication: PRODUCT USED FOR UNKNOWN INDICATION
     Dosage: 5 MG, BID
     Route: 048
  4. PRAVASTATIN. [Suspect]
     Active Substance: PRAVASTATIN
     Indication: GENE MUTATION
     Dosage: 20 MG, QD
     Route: 048
     Dates: start: 20170607
  5. MABTHERA [Suspect]
     Active Substance: RITUXIMAB
     Indication: GENE MUTATION
     Dosage: 500 MG/M2, UNK
     Route: 042
     Dates: start: 20170607, end: 20170927
  6. ZYDELIG [Suspect]
     Active Substance: IDELALISIB
     Indication: GENE MUTATION
  7. ZYDELIG [Suspect]
     Active Substance: IDELALISIB
     Indication: CHRONIC LYMPHOCYTIC LEUKAEMIA
     Dosage: 150 MG, BID
     Route: 065
     Dates: start: 20170607, end: 20170927
  8. ZYDELIG [Suspect]
     Active Substance: IDELALISIB
     Indication: GENE MUTATION
  9. PENTAMIDINE [Concomitant]
     Active Substance: PENTAMIDINE
     Indication: PRODUCT USED FOR UNKNOWN INDICATION
     Dosage: UNK
     Route: 065
  10. COTRIM FORTE [Concomitant]
     Active Substance: SULFAMETHOXAZOLE\TRIMETHOPRIM
     Indication: INFECTION PROPHYLAXIS
     Dosage: UNK
     Route: 048
     Dates: start: 20170607, end: 20170831
  11. DIOVAN [Concomitant]
     Active Substance: VALSARTAN
     Indication: HEADACHE
     Dosage: 160 MG, QD
     Route: 048

REACTIONS (2)
  - Alanine aminotransferase increased [Unknown]
  - Exfoliative rash [Recovered/Resolved]
